FAERS Safety Report 9915675 (Version 1)
Quarter: 2014Q1

REPORT INFORMATION
  Report Type: Spontaneous
  Country: US (occurrence: None)
  Receive Date: 20140219
  Receipt Date: 20140219
  Transmission Date: 20141002
  Serious: No
  Sender: FDA-Public Use
  Company Number: None

PATIENT
  Age: 82 Year
  Sex: Female
  Weight: 58.97 kg

DRUGS (13)
  1. PICATO GEL [Suspect]
     Indication: HYPERKERATOSIS
     Dosage: 3 TABS
     Route: 061
     Dates: start: 20140115
  2. APRISO [Concomitant]
  3. DEXILANT [Concomitant]
  4. DIGOXIN [Concomitant]
  5. COZAAR [Concomitant]
  6. LIPITOR [Concomitant]
  7. SINGULAIR [Concomitant]
  8. FOLIC ACID [Concomitant]
  9. DAILY VITAMIN [Concomitant]
  10. MAGNESIUM [Concomitant]
  11. ALAVERT [Concomitant]
  12. BABY ASPIRIN [Concomitant]
  13. CALCIUM [Concomitant]

REACTIONS (5)
  - Swelling face [None]
  - Nasal oedema [None]
  - Swelling [None]
  - Erythema [None]
  - Scab [None]
